FAERS Safety Report 13763129 (Version 3)
Quarter: 2017Q4

REPORT INFORMATION
  Report Type: Spontaneous
  Country: US (occurrence: US)
  Receive Date: 20170718
  Receipt Date: 20171212
  Transmission Date: 20180320
  Serious: Yes (Other)
  Sender: FDA-Public Use
  Company Number: US-ASTELLAS-2017US027720

PATIENT
  Age: 4 Year
  Sex: Male

DRUGS (5)
  1. METHOTREXATE. [Concomitant]
     Active Substance: METHOTREXATE
     Indication: PROPHYLAXIS AGAINST GRAFT VERSUS HOST DISEASE
     Dosage: UNK UNK, UNKNOWN FREQ.
     Route: 065
  2. MELPHALAN. [Concomitant]
     Active Substance: MELPHALAN
     Indication: BONE MARROW TRANSPLANT
     Dosage: UNK UNK, UNKNOWN FREQ. (N=1)
     Route: 065
  3. TACROLIMUS. [Suspect]
     Active Substance: TACROLIMUS
     Indication: PROPHYLAXIS AGAINST GRAFT VERSUS HOST DISEASE
     Dosage: UNK, UNKNOWN FREQ.
     Route: 065
  4. FLUDARABINE [Concomitant]
     Active Substance: FLUDARABINE PHOSPHATE
     Indication: BONE MARROW TRANSPLANT
     Dosage: UNK UNK, UNKNOWN FREQ. (N=5)
     Route: 065
  5. ALEMTUZUMAB [Concomitant]
     Active Substance: ALEMTUZUMAB
     Indication: BONE MARROW TRANSPLANT
     Dosage: UNK UNK, UNKNOWN FREQ. (FROM DAY - 13 TO - 10)
     Route: 065

REACTIONS (14)
  - Bacterial diarrhoea [Recovered/Resolved]
  - Rhinovirus infection [Recovered/Resolved]
  - Rash maculo-papular [Recovering/Resolving]
  - Intussusception [Recovered/Resolved]
  - Enterobacter bacteraemia [Recovered/Resolved]
  - Staphylococcal bacteraemia [Recovered/Resolved]
  - Viral upper respiratory tract infection [Recovered/Resolved]
  - Off label use [Unknown]
  - Immune thrombocytopenic purpura [Recovering/Resolving]
  - Corynebacterium infection [Recovered/Resolved]
  - Otitis media bacterial [Recovered/Resolved]
  - Clostridium difficile infection [Recovered/Resolved]
  - Epstein-Barr viraemia [Recovered/Resolved]
  - Therapeutic response unexpected [Unknown]
